FAERS Safety Report 6830198-7 (Version None)
Quarter: 2010Q3

REPORT INFORMATION
  Report Type: 
  Country: None (occurrence: None)
  Receive Date: 20100711
  Receipt Date: 20100609
  Transmission Date: 20110219
  Serious: No
  Sender: FDA-Public Use
  Company Number: US-ALLERGAN-1007620US

PATIENT
  Sex: Female

DRUGS (1)
  1. LATISSE [Suspect]
     Dosage: UNK
     Dates: start: 20100101

REACTIONS (1)
  - DRUG INEFFECTIVE [None]
